FAERS Safety Report 14683079 (Version 2)
Quarter: 2018Q2

REPORT INFORMATION
  Report Type: Report from Study
  Country: JP (occurrence: JP)
  Receive Date: 20180327
  Receipt Date: 20180409
  Transmission Date: 20180711
  Serious: Yes (Other)
  Sender: FDA-Public Use
  Company Number: JP-ROCHE-2097519

PATIENT

DRUGS (1)
  1. OMALIZUMAB. [Suspect]
     Active Substance: OMALIZUMAB
     Indication: ASTHMA
     Dosage: 75 MG TO 600 MG SUBCUTANEOUSLY EVERY 2 OR 4 WEEKS
     Route: 058

REACTIONS (1)
  - Anaphylactoid reaction [Recovered/Resolved]
